FAERS Safety Report 7062196-5 (Version None)
Quarter: 2010Q4

REPORT INFORMATION
  Report Type: 
  Country: None (occurrence: None)
  Receive Date: 20101026
  Receipt Date: 20101014
  Transmission Date: 20110411
  Serious: Yes (Death)
  Sender: FDA-Public Use
  Company Number: US-WYE-H00979507

PATIENT
  Sex: Female

DRUGS (6)
  1. PREMPRO [Suspect]
  2. ESTRACE [Suspect]
  3. MEDROXYPROGESTERONE ACETATE [Suspect]
  4. PROVERA [Suspect]
  5. CYCRIN [Suspect]
  6. ESTRADIOL [Suspect]

REACTIONS (1)
  - CEREBROVASCULAR ACCIDENT [None]
